FAERS Safety Report 15771211 (Version 1)
Quarter: 2018Q4

REPORT INFORMATION
  Report Type: Spontaneous
  Country: US (occurrence: US)
  Receive Date: 20181228
  Receipt Date: 20181228
  Transmission Date: 20190205
  Serious: Yes (Other)
  Sender: FDA-Public Use
  Company Number: None

PATIENT
  Age: 68 Year
  Sex: Male
  Weight: 78.75 kg

DRUGS (8)
  1. NIACIN. [Concomitant]
     Active Substance: NIACIN
  2. CARVEDILOL. [Suspect]
     Active Substance: CARVEDILOL
     Indication: HYPERTENSION
     Dosage: ?          QUANTITY:1 TABLET(S);?
     Route: 048
     Dates: start: 20181220, end: 20181224
  3. ASPIRIN. [Concomitant]
     Active Substance: ASPIRIN
  4. TRAMADOL. [Concomitant]
     Active Substance: TRAMADOL
  5. ACETAMINOPHEN. [Concomitant]
     Active Substance: ACETAMINOPHEN
  6. CARVEDILOL. [Suspect]
     Active Substance: CARVEDILOL
     Indication: HEART RATE IRREGULAR
     Dosage: ?          QUANTITY:1 TABLET(S);?
     Route: 048
     Dates: start: 20181220, end: 20181224
  7. TERAZOSIN [Concomitant]
     Active Substance: TERAZOSIN\TERAZOSIN HYDROCHLORIDE
  8. ASMANEX [Concomitant]
     Active Substance: MOMETASONE FUROATE

REACTIONS (3)
  - Paradoxical drug reaction [None]
  - Hypertension [None]
  - Drug ineffective [None]

NARRATIVE: CASE EVENT DATE: 20181224
